FAERS Safety Report 11249617 (Version 1)
Quarter: 2015Q3

REPORT INFORMATION
  Report Type: Spontaneous
  Country: US (occurrence: US)
  Receive Date: 20150708
  Receipt Date: 20150708
  Transmission Date: 20151125
  Serious: No
  Sender: FDA-Public Use
  Company Number: US-ELI_LILLY_AND_COMPANY-US201010001961

PATIENT
  Sex: Female

DRUGS (13)
  1. COUMADIN [Concomitant]
     Active Substance: WARFARIN SODIUM
  2. MAGNESIUM [Concomitant]
     Active Substance: MAGNESIUM
  3. IMODIUM [Concomitant]
     Active Substance: LOPERAMIDE HYDROCHLORIDE
  4. DEXAMETHASONE. [Concomitant]
     Active Substance: DEXAMETHASONE
  5. ANAPRIL [Concomitant]
     Active Substance: ENALAPRIL MALEATE
  6. IRON [Concomitant]
     Active Substance: IRON
  7. ALIMTA [Suspect]
     Active Substance: PEMETREXED DISODIUM
     Indication: NON-SMALL CELL LUNG CANCER
     Dosage: 750 MG, UNK
     Dates: start: 20100929, end: 20100929
  8. HCT [Concomitant]
     Active Substance: HYDROCHLOROTHIAZIDE
  9. NEULASTA [Concomitant]
     Active Substance: PEGFILGRASTIM
  10. SPIRIVA [Concomitant]
     Active Substance: TIOTROPIUM BROMIDE MONOHYDRATE
  11. CLONIDINE. [Concomitant]
     Active Substance: CLONIDINE
     Dosage: 0.1 MG, EVERY 8 HRS
  12. ATIVAN [Concomitant]
     Active Substance: LORAZEPAM
  13. FOLIC ACID W/VITAMIN B12 [Concomitant]

REACTIONS (2)
  - Mucosal inflammation [Unknown]
  - Candida infection [Unknown]
